FAERS Safety Report 5398213-8 (Version None)
Quarter: 2007Q3

REPORT INFORMATION
  Report Type: 
  Country: None (occurrence: None)
  Receive Date: 20070726
  Receipt Date: 20070716
  Transmission Date: 20080115
  Serious: Yes (Other)
  Sender: FDA-Public Use
  Company Number: US-GILEAD-2007-0012708

PATIENT
  Age: 40 Year
  Sex: Female

DRUGS (3)
  1. TRUVADA [Suspect]
     Indication: ASYMPTOMATIC HIV INFECTION
     Route: 048
     Dates: start: 20060503, end: 20060606
  2. KALETRA [Concomitant]
     Indication: ASYMPTOMATIC HIV INFECTION
     Route: 048
     Dates: start: 20070503
  3. TRIZIVIR [Concomitant]
     Indication: ASYMPTOMATIC HIV INFECTION
     Route: 048
     Dates: start: 20070606

REACTIONS (2)
  - PREGNANCY [None]
  - PREMATURE LABOUR [None]
